FAERS Safety Report 4864059-X (Version None)
Quarter: 2005Q4

REPORT INFORMATION
  Report Type: 
  Country: None (occurrence: None)
  Receive Date: 20051219
  Receipt Date: 20051209
  Transmission Date: 20060501
  Serious: Yes (Death)
  Sender: FDA-Public Use
  Company Number: 05H-107-0304183-00

PATIENT
  Age: 65 Year
  Sex: Male

DRUGS (13)
  1. VANCOMYCIN HYDROCHLORIDE [Suspect]
     Indication: INFECTION
     Dosage: 1 GM, 2 IN 1 D, INTRAVNEOUS
     Route: 042
     Dates: start: 20040913, end: 20050920
  2. PREDNISONE [Suspect]
  3. RAPAMYCIN (SIROLIMUS) [Suspect]
  4. LEVOTHYROXINE SODIUM [Concomitant]
  5. OMEPRAZOLE [Concomitant]
  6. ITRACONAZOLE [Concomitant]
  7. GANCICLOVIR SODIUM [Concomitant]
  8. PRAVASTATIN [Concomitant]
  9. SENNOSIDE (SENNOSIDE A) [Concomitant]
  10. CIPROFLOXIN (CIPROFLOXACIN) [Concomitant]
  11. ALBUMIN (HUMAN) [Concomitant]
  12. MEROPENEM (MEROPENEM) [Concomitant]
  13. AMPHOTERICIN B [Concomitant]

REACTIONS (20)
  - ASPERGILLOSIS [None]
  - CATHETER RELATED INFECTION [None]
  - DRUG INEFFECTIVE [None]
  - ENDOCARDITIS BACTERIAL [None]
  - HAEMOPTYSIS [None]
  - HYPOTENSION [None]
  - LUNG INFECTION [None]
  - OLIGURIA [None]
  - OPPORTUNISTIC INFECTION [None]
  - PLEURAL EFFUSION [None]
  - POST PROCEDURAL COMPLICATION [None]
  - PRODUCTIVE COUGH [None]
  - PULMONARY EMBOLISM [None]
  - PULMONARY INFARCTION [None]
  - SEPTIC EMBOLUS [None]
  - SHOCK [None]
  - SPUTUM DISCOLOURED [None]
  - STAPHYLOCOCCAL BACTERAEMIA [None]
  - SUBCUTANEOUS EMPHYSEMA [None]
  - THERAPY NON-RESPONDER [None]
